FAERS Safety Report 7737106-5 (Version None)
Quarter: 2011Q3

REPORT INFORMATION
  Report Type: 
  Country: None (occurrence: None)
  Receive Date: 20110908
  Receipt Date: 20110829
  Transmission Date: 20111222
  Serious: Yes (Other)
  Sender: FDA-Public Use
  Company Number: US-ROCHE-799699

PATIENT

DRUGS (3)
  1. TRASTUZUMAB [Suspect]
     Dosage: LOADING DOSE. OVER 90 MINUTES.
     Route: 042
  2. TANESPIMYCIN [Suspect]
     Route: 042
  3. TRASTUZUMAB [Suspect]
     Dosage: OVER 30 MINUTES
     Route: 042

REACTIONS (9)
  - VOMITING [None]
  - COUGH [None]
  - DEPRESSION [None]
  - HEADACHE [None]
  - EJECTION FRACTION DECREASED [None]
  - FATIGUE [None]
  - TRANSAMINASES INCREASED [None]
  - DIARRHOEA [None]
  - NAUSEA [None]
